FAERS Safety Report 5897336-4 (Version None)
Quarter: 2008Q3

REPORT INFORMATION
  Report Type: 
  Country: None (occurrence: None)
  Receive Date: 20080925
  Receipt Date: 20070829
  Transmission Date: 20090109
  Serious: No
  Sender: FDA-Public Use
  Company Number: A0677375A

PATIENT
  Age: 55 Year
  Sex: Male

DRUGS (3)
  1. EPZICOM [Suspect]
     Indication: HIV INFECTION
     Dosage: 2TAB PER DAY
     Route: 048
     Dates: start: 20061001, end: 20070801
  2. NORVASC [Concomitant]
  3. NORVIR [Concomitant]

REACTIONS (2)
  - ACCIDENTAL OVERDOSE [None]
  - RENAL DISORDER [None]
